FAERS Safety Report 6134485-X (Version None)
Quarter: 2009Q1

REPORT INFORMATION
  Report Type: 
  Country: None (occurrence: None)
  Receive Date: 20090327
  Receipt Date: 20090320
  Transmission Date: 20090719
  Serious: Yes (Hospitalization, Other)
  Sender: FDA-Public Use
  Company Number: DK-NOVOPROD-285584

PATIENT
  Age: 74 Year
  Sex: Female
  Weight: 100 kg

DRUGS (1)
  1. INSULATARD FLEXPEN [Suspect]
     Indication: DIABETES MELLITUS
     Dates: start: 20020801, end: 20080514

REACTIONS (3)
  - FACIAL BONES FRACTURE [None]
  - FALL [None]
  - HYPOGLYCAEMIC UNCONSCIOUSNESS [None]
